FAERS Safety Report 7865097-5 (Version None)
Quarter: 2011Q4

REPORT INFORMATION
  Report Type: 
  Country: None (occurrence: None)
  Receive Date: 20111028
  Receipt Date: 20101013
  Transmission Date: 20120403
  Serious: No
  Sender: FDA-Public Use
  Company Number: US-GLAXOSMITHKLINE-A0886407A

PATIENT
  Age: 49 Year
  Sex: Female

DRUGS (7)
  1. LEVAQUIN [Concomitant]
  2. ADVAIR DISKUS 100/50 [Suspect]
     Indication: BRONCHOSPASM
     Dosage: 1PUFF TWICE PER DAY
     Route: 055
     Dates: start: 20100401
  3. AUGMENTIN [Concomitant]
  4. PREDNISONE [Concomitant]
  5. LEVOTHYROXINE SODIUM [Concomitant]
  6. ZITHROMAX [Concomitant]
  7. TETRACYCLINE [Concomitant]

REACTIONS (8)
  - DIARRHOEA [None]
  - HYPOAESTHESIA [None]
  - COUGH [None]
  - DECREASED APPETITE [None]
  - MUSCLE SPASMS [None]
  - THROAT IRRITATION [None]
  - BRONCHITIS [None]
  - BLOOD PRESSURE INCREASED [None]
